FAERS Safety Report 5013107-5 (Version None)
Quarter: 2006Q2

REPORT INFORMATION
  Report Type: 
  Country: None (occurrence: None)
  Receive Date: 20060530
  Receipt Date: 20060227
  Transmission Date: 20061013
  Serious: No
  Sender: FDA-Public Use
  Company Number: US-GLAXOSMITHKLINE-A0595340A

PATIENT
  Age: 47 Year
  Sex: Female

DRUGS (3)
  1. WELLBUTRIN XL [Suspect]
     Indication: DEPRESSION
     Dosage: 300MG PER DAY
     Route: 048
     Dates: start: 20060201
  2. LOESTRIN FE 1/20 [Concomitant]
     Route: 065
  3. MULTI-VITAMIN [Concomitant]

REACTIONS (7)
  - ANOREXIA [None]
  - ARTHRALGIA [None]
  - BACK PAIN [None]
  - LIP DRY [None]
  - PAIN IN EXTREMITY [None]
  - POLLAKIURIA [None]
  - THIRST [None]
